FAERS Safety Report 13925436 (Version 2)
Quarter: 2018Q1

REPORT INFORMATION
  Report Type: Report from Study
  Country: US (occurrence: US)
  Receive Date: 20170831
  Receipt Date: 20180302
  Transmission Date: 20180508
  Serious: Yes (Other)
  Sender: FDA-Public Use
  Company Number: US-JNJFOC-20170828350

PATIENT
  Sex: Male

DRUGS (17)
  1. ZITHROMAX [Concomitant]
     Active Substance: AZITHROMYCIN DIHYDRATE
     Dosage: 250 MG, QD FOR 30 DAYS
     Route: 048
  2. TUMS [Concomitant]
     Active Substance: CALCIUM CARBONATE
     Dosage: 200 MG TAB CALCIUM (500 MG) TAKES 1.5 TABLETS, TID
     Route: 048
  3. ADVAIR HFA [Concomitant]
     Active Substance: FLUTICASONE PROPIONATE\SALMETEROL XINAFOATE
     Dosage: 230:21 MCG/ACTUATION, INHALE TWO PUFFS BY MOUTH BID
  4. ROXICODONE [Concomitant]
     Active Substance: OXYCODONE HYDROCHLORIDE
     Indication: PAIN
     Dosage: TAKE FIVE MG , EVERY FOUR HOUR PRN
  5. DEMADEX [Concomitant]
     Active Substance: TORSEMIDE
     Route: 048
  6. SYNTHROID [Concomitant]
     Active Substance: LEVOTHYROXINE SODIUM
     Route: 048
  7. TYLENOL [Concomitant]
     Active Substance: ACETAMINOPHEN
     Indication: PAIN
     Dosage: TAKE TWO TABS, EVERY FOUR HOUR PRN
     Route: 048
  8. IMBRUVICA [Suspect]
     Active Substance: IBRUTINIB
     Indication: CHRONIC LYMPHOCYTIC LEUKAEMIA
     Route: 048
     Dates: end: 20171218
  9. NASALIDE [Concomitant]
     Active Substance: FLUNISOLIDE
     Dosage: 25 MCG, INSTILL TWO SPRAYS INTO BOTH NOSTRILS BID PRN
     Route: 045
  10. ZAROXOLYN [Concomitant]
     Active Substance: METOLAZONE
     Route: 048
  11. PROAMATINE [Concomitant]
     Active Substance: MIDODRINE HYDROCHLORIDE
     Dosage: TAKE 1 TAB DAILY BEFORE DINNER. TOTAL DOSE 15 MG IN THE MORNING, 15 MG AT LUNCH AND 5 IN THE EVENIN
     Route: 048
  12. COUMADIN [Concomitant]
     Active Substance: WARFARIN SODIUM
     Indication: THROMBOSIS
     Dosage: 0.5-1 TABS
     Route: 048
  13. GLUCOSAMINE HYDROCHLORIDE [Concomitant]
     Active Substance: GLUCOSAMINE HYDROCHLORIDE
     Dosage: 1 CAPSULE BY MISC (NON-DRUG; COMBO ROUTE) BID
  14. HEPARIN SODIUM PORCINE [Concomitant]
     Active Substance: HEPARIN SODIUM
     Dosage: 5000/0.5 U/ML, BID
     Route: 042
  15. CLARITIN [Concomitant]
     Active Substance: LORATADINE
     Route: 048
  16. BENADRYL [Concomitant]
     Active Substance: DIPHENHYDRAMINE HYDROCHLORIDE
     Route: 048
  17. BACTROBAN [Concomitant]
     Active Substance: MUPIROCIN\MUPIROCIN CALCIUM
     Dosage: MIX ONE TUBE WITH SALINE AS DIRECTED FOR NASAL RINSE

REACTIONS (1)
  - Fluid retention [Not Recovered/Not Resolved]

NARRATIVE: CASE EVENT DATE: 2017
